FAERS Safety Report 5278707-6 (Version None)
Quarter: 2007Q1

REPORT INFORMATION
  Report Type: 
  Country: None (occurrence: None)
  Receive Date: 20070322
  Receipt Date: 20070319
  Transmission Date: 20070707
  Serious: Yes (Death)
  Sender: FDA-Public Use
  Company Number: 2007-01374

PATIENT
  Age: 52 Year

DRUGS (1)
  1. ACETAMINOPHEN/CODEINE PHOSPHATE UNKNOWN STRENGTH (WATSON LABORATORIES) [Suspect]
     Indication: ANALGESIC EFFECT

REACTIONS (1)
  - DEATH [None]
